FAERS Safety Report 17479921 (Version 1)
Quarter: 2020Q1

REPORT INFORMATION
  Report Type: Spontaneous
  Country: CA (occurrence: CA)
  Receive Date: 20200229
  Receipt Date: 20200229
  Transmission Date: 20200409
  Serious: Yes (Other)
  Sender: FDA-Public Use
  Company Number: CA-TEVA-2020-CA-1190828

PATIENT
  Age: 17 Year
  Sex: Male
  Weight: 72 kg

DRUGS (3)
  1. CITALOPRAM [Concomitant]
     Active Substance: CITALOPRAM HYDROBROMIDE
  2. ACT BUPROPION XL [Suspect]
     Active Substance: BUPROPION
     Indication: ADVERSE DRUG REACTION
     Dosage: 150 MILLIGRAM DAILY;
     Route: 048
  3. BOTOX ONABOTULINUMTOXINA. 50U/50ALLERGAN U VIAL, 100U/100ALLERGAN U VI [Concomitant]

REACTIONS (13)
  - Cyanosis [Recovering/Resolving]
  - Hypoaesthesia [Recovering/Resolving]
  - Swelling [Recovering/Resolving]
  - Urticaria [Recovering/Resolving]
  - Dizziness [Recovering/Resolving]
  - Joint swelling [Recovering/Resolving]
  - Pyrexia [Recovering/Resolving]
  - Serum sickness-like reaction [Recovering/Resolving]
  - Lip swelling [Recovering/Resolving]
  - Skin warm [Recovering/Resolving]
  - Nausea [Recovering/Resolving]
  - Peripheral swelling [Recovering/Resolving]
  - Skin discolouration [Recovering/Resolving]
